FAERS Safety Report 8611415-X (Version None)
Quarter: 2012Q3

REPORT INFORMATION
  Report Type: 
  Country: None (occurrence: None)
  Receive Date: 20120822
  Receipt Date: 20120813
  Transmission Date: 20120928
  Serious: Yes (Hospitalization, Other)
  Sender: FDA-Public Use
  Company Number: US-ASTRAZENECA-2012SE57304

PATIENT
  Age: 28551 Day
  Sex: Female
  Weight: 52.6 kg

DRUGS (4)
  1. CRESTOR [Suspect]
     Indication: BLOOD CHOLESTEROL ABNORMAL
     Route: 048
     Dates: start: 20010101, end: 20120101
  2. THYROID MEDICATIONS [Concomitant]
  3. TYLENOL [Suspect]
     Route: 065
  4. LUNG MEDICATIONS [Concomitant]

REACTIONS (6)
  - LUNG DISORDER [None]
  - MEMORY IMPAIRMENT [None]
  - DRUG-INDUCED LIVER INJURY [None]
  - PNEUMONIA [None]
  - PNEUMOTHORAX [None]
  - RENAL DISORDER [None]
